FAERS Safety Report 22352281 (Version 1)
Quarter: 2023Q2

REPORT INFORMATION
  Report Type: Spontaneous
  Country: US (occurrence: US)
  Receive Date: 20230522
  Receipt Date: 20230522
  Transmission Date: 20230722
  Serious: No
  Sender: FDA-Public Use
  Company Number: US-DSJP-DSU-2023-120042

PATIENT
  Sex: Female

DRUGS (1)
  1. ENHERTU [Suspect]
     Active Substance: FAM-TRASTUZUMAB DERUXTECAN-NXKI
     Indication: Breast cancer female
     Dosage: UNK
     Route: 065
     Dates: start: 20230514

REACTIONS (2)
  - Cough [Unknown]
  - Chest scan abnormal [Unknown]

NARRATIVE: CASE EVENT DATE: 20230501
